FAERS Safety Report 4284533-7 (Version None)
Quarter: 2004Q1

REPORT INFORMATION
  Report Type: 
  Country: None (occurrence: None)
  Receive Date: 20040130
  Receipt Date: 20040121
  Transmission Date: 20041129
  Serious: No
  Sender: FDA-Public Use
  Company Number: 2004GB00069

PATIENT
  Age: 56 Year
  Sex: Male
  Weight: 73.0291 kg

DRUGS (4)
  1. ZESTRIL [Suspect]
     Indication: COMPUTERISED TOMOGRAM
     Dosage: 5 MG DAILY PO
     Route: 048
     Dates: start: 20021201
  2. LIPOSTAT [Suspect]
     Indication: BLOOD CHOLESTEROL INCREASED
     Dosage: 10 MG DAILY PO
     Route: 048
     Dates: start: 20030601, end: 20030801
  3. IMDUR [Concomitant]
  4. ASPIRIN NU-SEAL [Concomitant]

REACTIONS (2)
  - DRUG INTERACTION [None]
  - WEIGHT DECREASED [None]
